FAERS Safety Report 11057957 (Version 1)
Quarter: 2015Q2

REPORT INFORMATION
  Report Type: Spontaneous
  Country: US (occurrence: None)
  Receive Date: 20150421
  Receipt Date: 20150421
  Transmission Date: 20150821
  Serious: Yes (Death, Hospitalization)
  Sender: FDA-Public Use
  Company Number: None

PATIENT
  Age: 61 Year
  Sex: Male
  Weight: 56.4 kg

DRUGS (2)
  1. OXYCODONE [Suspect]
     Active Substance: OXYCODONE
     Indication: PAIN
     Route: 048
     Dates: start: 20150223, end: 20150301
  2. MORPHINE [Suspect]
     Active Substance: MORPHINE
     Indication: PAIN
     Route: 048
     Dates: start: 20150227, end: 20150301

REACTIONS (8)
  - Sedation [None]
  - Respiratory acidosis [None]
  - Hypotension [None]
  - Atrial fibrillation [None]
  - Respiratory depression [None]
  - Tachycardia [None]
  - Metabolic acidosis [None]
  - Areflexia [None]

NARRATIVE: CASE EVENT DATE: 20150301
